FAERS Safety Report 14378898 (Version 7)
Quarter: 2018Q2

REPORT INFORMATION
  Report Type: Spontaneous
  Country: FR (occurrence: FR)
  Receive Date: 20180112
  Receipt Date: 20180607
  Transmission Date: 20180711
  Serious: Yes (Other)
  Sender: FDA-Public Use
  Company Number: FR-AUROBINDO-AUR-APL-2018-001720

PATIENT
  Age: 50 Year
  Sex: Male
  Weight: 52 kg

DRUGS (52)
  1. PREDNISONE TABLET [Suspect]
     Active Substance: PREDNISONE
     Indication: NON-HODGKIN^S LYMPHOMA STAGE IV
     Dosage: R-CHOP CHEMOTHERAPY
     Route: 065
  2. TRUVADA [Suspect]
     Active Substance: EMTRICITABINE\TENOFOVIR DISOPROXIL FUMARATE
     Dosage: UNK ()
     Route: 048
  3. ENDOXAN                            /00021101/ [Suspect]
     Active Substance: CYCLOPHOSPHAMIDE
     Dosage: 1000 MG, UNK
     Route: 065
  4. RITUXIMAB. [Suspect]
     Active Substance: RITUXIMAB
     Dosage: R-CHOP CHEMOTHERAPY ()
     Route: 065
  5. CYTARABINE. [Suspect]
     Active Substance: CYTARABINE
     Dosage: ()
     Route: 065
  6. MABTHERA [Suspect]
     Active Substance: RITUXIMAB
     Dosage: UNK ()
  7. MABTHERA [Suspect]
     Active Substance: RITUXIMAB
     Dosage: UNK ()
     Route: 065
  8. CYTARABINE. [Suspect]
     Active Substance: CYTARABINE
     Dosage: ()
     Route: 065
  9. MABTHERA [Suspect]
     Active Substance: RITUXIMAB
     Dosage: UNK ()
  10. VIREAD [Suspect]
     Active Substance: TENOFOVIR DISOPROXIL FUMARATE
     Dosage: DOSAGE FORM: SOLUTIONUNK ()
     Route: 065
     Dates: start: 20171106
  11. BACTRIM [Concomitant]
     Active Substance: SULFAMETHOXAZOLE\TRIMETHOPRIM
     Dosage: UNK ()
     Route: 065
  12. EMTRIVA [Concomitant]
     Active Substance: EMTRICITABINE
     Dosage: UNK ()
     Route: 065
  13. PREDNISOLONE. [Suspect]
     Active Substance: PREDNISOLONE
     Indication: NON-HODGKIN^S LYMPHOMA
     Dosage: UNK
  14. DEXAMETHASONE. [Concomitant]
     Active Substance: DEXAMETHASONE
     Indication: PRODUCT USED FOR UNKNOWN INDICATION
     Dosage: UNK
     Route: 065
  15. BACTRIM [Concomitant]
     Active Substance: SULFAMETHOXAZOLE\TRIMETHOPRIM
     Indication: PRODUCT USED FOR UNKNOWN INDICATION
     Dosage: DOSAGE FORM: UNSPECIFIED ()
     Route: 065
     Dates: start: 2016
  16. RITUXIMAB. [Suspect]
     Active Substance: RITUXIMAB
     Dosage: UNK ()
     Route: 065
  17. CYTARABINE. [Suspect]
     Active Substance: CYTARABINE
     Dosage: UNK ()
     Route: 065
  18. MABTHERA [Suspect]
     Active Substance: RITUXIMAB
     Dosage: DOSAGE FORM: UNSPECIFIED ()
  19. DEXAMETHASONE. [Concomitant]
     Active Substance: DEXAMETHASONE
     Dosage: UNK ()
  20. ISENTRESS [Suspect]
     Active Substance: RALTEGRAVIR POTASSIUM
     Indication: PRODUCT USED FOR UNKNOWN INDICATION
     Dosage: UNK ()
     Route: 048
     Dates: start: 2016, end: 20171009
  21. RITUXIMAB. [Suspect]
     Active Substance: RITUXIMAB
     Indication: NON-HODGKIN^S LYMPHOMA STAGE IV
     Dosage: R-CHOP CHEMOTHERAPY
     Route: 065
  22. RITUXIMAB. [Suspect]
     Active Substance: RITUXIMAB
     Dosage: DOSAGE FORM: UNSPECIFIED ()
     Route: 065
  23. RITUXIMAB. [Suspect]
     Active Substance: RITUXIMAB
     Dosage: UNK ()
     Route: 065
  24. RITUXIMAB. [Suspect]
     Active Substance: RITUXIMAB
     Dosage: UNK ()
     Route: 065
  25. CISPLATIN. [Suspect]
     Active Substance: CISPLATIN
     Indication: PRODUCT USED FOR UNKNOWN INDICATION
     Dosage: UNK
     Route: 065
  26. VIREAD [Suspect]
     Active Substance: TENOFOVIR DISOPROXIL FUMARATE
     Dosage: UNK ()
     Route: 065
  27. DEXAMETHASONE. [Concomitant]
     Active Substance: DEXAMETHASONE
     Dosage: UNK ()
  28. DOXORUBICIN [Suspect]
     Active Substance: DOXORUBICIN
     Indication: NON-HODGKIN^S LYMPHOMA STAGE IV
     Dosage: UNK ()
     Route: 065
  29. TRUVADA [Suspect]
     Active Substance: EMTRICITABINE\TENOFOVIR DISOPROXIL FUMARATE
     Dosage: UNK ()
     Route: 065
     Dates: start: 2016, end: 20161009
  30. CYTARABINE. [Suspect]
     Active Substance: CYTARABINE
     Indication: PRODUCT USED FOR UNKNOWN INDICATION
     Dosage: UNK
     Route: 065
  31. CISPLATIN. [Suspect]
     Active Substance: CISPLATIN
     Dosage: DOSAGE FORM: UNSPECIFIED ()
     Route: 065
  32. CISPLATIN. [Suspect]
     Active Substance: CISPLATIN
     Dosage: ()
     Route: 065
  33. VIREAD [Suspect]
     Active Substance: TENOFOVIR DISOPROXIL FUMARATE
     Dosage: UNK ()
     Route: 065
  34. DEXAMETHASONE. [Concomitant]
     Active Substance: DEXAMETHASONE
     Dosage: ()
  35. BACTRIM [Concomitant]
     Active Substance: SULFAMETHOXAZOLE\TRIMETHOPRIM
     Dosage: UNK ()
     Route: 065
  36. VINCRISTINE [Suspect]
     Active Substance: VINCRISTINE
     Indication: NON-HODGKIN^S LYMPHOMA STAGE IV
     Dosage: R-CHOP CHEMOTHERAPY
     Route: 065
  37. VINCRISTINE [Suspect]
     Active Substance: VINCRISTINE
     Dosage: UNK ()
     Route: 065
  38. ENDOXAN                            /00021101/ [Suspect]
     Active Substance: CYCLOPHOSPHAMIDE
     Dosage: 1000 MG, UNK
     Route: 065
  39. CYTARABINE. [Suspect]
     Active Substance: CYTARABINE
     Dosage: UNK ()
     Route: 065
  40. CISPLATIN. [Suspect]
     Active Substance: CISPLATIN
     Dosage: UNK ()
     Route: 065
  41. CISPLATIN. [Suspect]
     Active Substance: CISPLATIN
     Dosage: ()
     Route: 065
  42. VIREAD [Suspect]
     Active Substance: TENOFOVIR DISOPROXIL FUMARATE
     Indication: HIV INFECTION
     Dosage: UNK
     Route: 065
  43. BACTRIM [Concomitant]
     Active Substance: SULFAMETHOXAZOLE\TRIMETHOPRIM
     Dosage: UNK ()
     Route: 065
  44. EMTRIVA [Concomitant]
     Active Substance: EMTRICITABINE
     Indication: PRODUCT USED FOR UNKNOWN INDICATION
     Dosage: UNK ()
     Route: 065
  45. EMTRIVA [Concomitant]
     Active Substance: EMTRICITABINE
     Dosage: DOSAGE FORM: SOLUTION ()
     Route: 065
     Dates: start: 20171106
  46. ISENTRESS [Suspect]
     Active Substance: RALTEGRAVIR POTASSIUM
     Dosage: DOSAGE FORM: GRANULES ()
     Route: 065
     Dates: start: 20171106
  47. TRUVADA [Suspect]
     Active Substance: EMTRICITABINE\TENOFOVIR DISOPROXIL FUMARATE
     Indication: PRODUCT USED FOR UNKNOWN INDICATION
     Dosage: UNK ()
     Route: 048
     Dates: start: 2016, end: 20171009
  48. ENDOXAN                            /00021101/ [Suspect]
     Active Substance: CYCLOPHOSPHAMIDE
     Indication: NON-HODGKIN^S LYMPHOMA STAGE IV
     Dosage: 1000 MILLIGRAM
     Route: 065
  49. MABTHERA [Suspect]
     Active Substance: RITUXIMAB
     Indication: NON-HODGKIN^S LYMPHOMA
     Dosage: UNK ()
     Route: 065
  50. MABTHERA [Suspect]
     Active Substance: RITUXIMAB
     Dosage: UNK ()
     Route: 065
  51. MABTHERA [Suspect]
     Active Substance: RITUXIMAB
     Dosage: UNK ()
     Route: 065
  52. EMTRIVA [Concomitant]
     Active Substance: EMTRICITABINE
     Dosage: UNK ()
     Route: 065

REACTIONS (9)
  - Dysphagia [Unknown]
  - Product use in unapproved indication [Unknown]
  - Blood HIV RNA increased [Recovering/Resolving]
  - Oesophageal carcinoma [Unknown]
  - Off label use [Unknown]
  - Treatment failure [Unknown]
  - Viral load increased [Recovered/Resolved]
  - Neoplasm progression [Unknown]
  - Pathogen resistance [Unknown]

NARRATIVE: CASE EVENT DATE: 20171106
